FAERS Safety Report 10010279 (Version 1)
Quarter: 2014Q1

REPORT INFORMATION
  Report Type: Report from Study
  Country: MX (occurrence: MX)
  Receive Date: 20140314
  Receipt Date: 20140314
  Transmission Date: 20141002
  Serious: Yes (Other)
  Sender: FDA-Public Use
  Company Number: MX-ROCHE-1363084

PATIENT
  Age: 57 Year
  Sex: Male
  Weight: 62 kg

DRUGS (2)
  1. AVASTIN [Suspect]
     Indication: RENAL CANCER
     Route: 065
  2. INTERFERON ALFA-2A [Suspect]
     Indication: RENAL CANCER
     Route: 065

REACTIONS (3)
  - Nausea [Unknown]
  - Anaemia [Unknown]
  - Disease progression [Unknown]
